FAERS Safety Report 7887032-6 (Version None)
Quarter: 2011Q4

REPORT INFORMATION
  Report Type: 
  Country: None (occurrence: None)
  Receive Date: 20111102
  Receipt Date: 20110714
  Transmission Date: 20120403
  Serious: No
  Sender: FDA-Public Use
  Company Number: US-AMGEN-USASP2011035890

PATIENT
  Age: 53 Year
  Sex: Female

DRUGS (11)
  1. ENBREL [Suspect]
     Indication: PRODUCT USED FOR UNKNOWN INDICATION
     Dosage: 50 MG, QWK
     Route: 058
  2. METFORMIN HCL [Concomitant]
     Dosage: 500 MG, UNK
  3. LISINOPRIL [Concomitant]
     Dosage: 2.5 MG, UNK
  4. NOVOLOG MIX 70/30 [Concomitant]
     Dosage: UNK
  5. LEVOXYL [Concomitant]
     Dosage: UNK
  6. METHOTREXATE [Concomitant]
     Dosage: 2.5 MG, UNK
  7. FOLIC ACID [Concomitant]
     Dosage: 1 MG, UNK
  8. VITAMIN D                          /00318501/ [Concomitant]
     Dosage: 1000 U/L, UNK
  9. GLIPIZIDE [Concomitant]
     Dosage: 5 MG, UNK
  10. PREDNISONE [Concomitant]
     Dosage: 1 MG, UNK
  11. CYTOMEL [Concomitant]
     Dosage: 5 UNK, UNK

REACTIONS (1)
  - INJECTION SITE RASH [None]
